FAERS Safety Report 5848446-9 (Version None)
Quarter: 2008Q3

REPORT INFORMATION
  Report Type: 
  Country: None (occurrence: None)
  Receive Date: 20080815
  Receipt Date: 20080815
  Transmission Date: 20090109
  Serious: Yes (Other)
  Sender: FDA-Public Use
  Company Number: None

PATIENT
  Age: 58 Year
  Sex: Female
  Weight: 58.9676 kg

DRUGS (2)
  1. PROMETHAZINE [Suspect]
     Indication: NAUSEA
     Dosage: 1 EVERY 6 HOURS PO
     Route: 048
     Dates: start: 20080809, end: 20080809
  2. PROMETHAZINE [Suspect]
     Indication: VOMITING
     Dosage: 1 EVERY 6 HOURS PO
     Route: 048
     Dates: start: 20080809, end: 20080809

REACTIONS (1)
  - HALLUCINATION [None]
